FAERS Safety Report 15954428 (Version 1)
Quarter: 2019Q1

REPORT INFORMATION
  Report Type: Report from Study
  Country: US (occurrence: US)
  Receive Date: 20190212
  Receipt Date: 20190212
  Transmission Date: 20190417
  Serious: Yes (Death)
  Sender: FDA-Public Use
  Company Number: US-SLATE RUN PHARMACEUTICALS-SLTR-AE-19-11

PATIENT
  Sex: Female

DRUGS (2)
  1. CINACALCET HYDROCHLORIDE TABLET [Suspect]
     Active Substance: CINACALCET HYDROCHLORIDE
     Indication: HYPERPARATHYROIDISM
  2. UNKNOWN [Concomitant]
     Active Substance: UNSPECIFIED INGREDIENT

REACTIONS (9)
  - Pyrexia [Unknown]
  - Hypocalcaemia [Fatal]
  - Nausea [Unknown]
  - Blood parathyroid hormone increased [Unknown]
  - Diarrhoea [Unknown]
  - Dehydration [Unknown]
  - Cardio-respiratory arrest [Fatal]
  - Off label use [Recovered/Resolved]
  - Vomiting [Unknown]
